FAERS Safety Report 13205954 (Version 3)
Quarter: 2017Q1

REPORT INFORMATION
  Report Type: Report from Study
  Country: US (occurrence: US)
  Receive Date: 20170209
  Receipt Date: 20170324
  Transmission Date: 20170428
  Serious: Yes (Other)
  Sender: FDA-Public Use
  Company Number: US-SAOL THERAPEUTICS-2017SAO00246

PATIENT
  Age: 66 Year
  Sex: Female

DRUGS (10)
  1. FENTANYL. [Suspect]
     Active Substance: FENTANYL
     Dosage: 44.76 ?G, \DAY
     Route: 037
     Dates: start: 20161020, end: 20161028
  2. COMPOUNDED BACLOFEN [Suspect]
     Active Substance: BACLOFEN
     Dosage: 31.81 ?G, \DAY
     Route: 037
     Dates: start: 20161028
  3. FENTANYL. [Suspect]
     Active Substance: FENTANYL
     Dosage: 30.02 ?G, \DAY
     Route: 037
     Dates: start: 20161020, end: 20161028
  4. COMPOUNDED BACLOFEN [Suspect]
     Active Substance: BACLOFEN
     Dosage: 19.99 ?G, \DAY
     Route: 037
     Dates: start: 20161028
  5. FENTANYL. [Suspect]
     Active Substance: FENTANYL
     Dosage: 24.98 ?G, \DAY
     Route: 037
     Dates: start: 20161028, end: 20170126
  6. FENTANYL. [Suspect]
     Active Substance: FENTANYL
     Dosage: 39.77 ?G, \DAY
     Route: 037
     Dates: start: 20161028, end: 20170126
  7. FENTANYL. [Suspect]
     Active Substance: FENTANYL
     Dosage: 55.67 ?G, \DAY
     Route: 037
     Dates: start: 20170126
  8. FENTANYL. [Suspect]
     Active Substance: FENTANYL
     Dosage: 34.98 ?G, \DAY
     Route: 037
     Dates: start: 20170126
  9. COMPOUNDED BACLOFEN [Suspect]
     Active Substance: BACLOFEN
     Dosage: 24.01 ?G, \DAY
     Route: 037
     Dates: start: 20161020, end: 20161028
  10. COMPOUNDED BACLOFEN [Suspect]
     Active Substance: BACLOFEN
     Dosage: 35.81 ?G, \DAY
     Route: 037
     Dates: start: 20161020, end: 20161028

REACTIONS (3)
  - Pain [Recovered/Resolved]
  - Implant site extravasation [Recovered/Resolved]
  - Device kink [Recovered/Resolved]

NARRATIVE: CASE EVENT DATE: 20170112
